APPROVED DRUG PRODUCT: ARIPIPRAZOLE
Active Ingredient: ARIPIPRAZOLE
Strength: 15MG
Dosage Form/Route: TABLET;ORAL
Application: A078583 | Product #004 | TE Code: AB
Applicant: APOTEX INC
Approved: Jul 24, 2015 | RLD: No | RS: No | Type: RX